FAERS Safety Report 20697268 (Version 1)
Quarter: 2022Q2

REPORT INFORMATION
  Report Type: Spontaneous
  Country: US (occurrence: US)
  Receive Date: 20220411
  Receipt Date: 20220411
  Transmission Date: 20220721
  Serious: Yes (Other)
  Sender: FDA-Public Use
  Company Number: US-PFIZER INC-202200483454

PATIENT
  Age: 26 Year
  Sex: Female
  Weight: 63.492 kg

DRUGS (6)
  1. SILDENAFIL CITRATE [Suspect]
     Active Substance: SILDENAFIL CITRATE
     Dosage: UNK
  2. NIFEDIPINE [Suspect]
     Active Substance: NIFEDIPINE
     Dosage: UNK
  3. OPSUMIT [Suspect]
     Active Substance: MACITENTAN
     Dosage: UNK
  4. REMODULIN [Suspect]
     Active Substance: TREPROSTINIL
     Indication: Pulmonary arterial hypertension
     Dosage: UNK
     Route: 041
     Dates: start: 20161222
  5. REMODULIN [Suspect]
     Active Substance: TREPROSTINIL
     Dosage: 0.050 UG/KG (CURRENT DOSE)
     Route: 041
  6. VELETRI [Suspect]
     Active Substance: EPOPROSTENOL
     Dosage: UNK

REACTIONS (5)
  - Dyspnoea [Unknown]
  - Heart rate increased [Unknown]
  - Fatigue [Unknown]
  - Flatulence [Unknown]
  - Product dose omission issue [Unknown]
